FAERS Safety Report 9828664 (Version 1)
Quarter: 2014Q1

REPORT INFORMATION
  Report Type: Spontaneous
  Country: US (occurrence: US)
  Receive Date: 20140117
  Receipt Date: 20140117
  Transmission Date: 20141002
  Serious: No
  Sender: FDA-Public Use
  Company Number: US-009507513-1401USA002711

PATIENT
  Age: 19 Year
  Sex: Female

DRUGS (4)
  1. ISENTRESS [Suspect]
     Dosage: TOTAL DAILY DOSE 800
     Route: 048
  2. DARUNAVIR [Suspect]
     Route: 048
  3. RITONAVIR [Suspect]
     Route: 048
  4. EMTRICITABINE (+) TENOFOVIR DISOPROXIL FUMARATE [Suspect]
     Route: 048

REACTIONS (1)
  - Exposure during pregnancy [Unknown]
